FAERS Safety Report 18989505 (Version 8)
Quarter: 2022Q2

REPORT INFORMATION
  Report Type: Spontaneous
  Country: JP (occurrence: JP)
  Receive Date: 20210310
  Receipt Date: 20220616
  Transmission Date: 20220720
  Serious: Yes (Hospitalization, Other)
  Sender: FDA-Public Use
  Company Number: JP-BRISTOL-MYERS SQUIBB COMPANY-BMS-2021-013821

PATIENT
  Age: 77 Year
  Sex: Male
  Weight: 43 kg

DRUGS (15)
  1. ELIQUIS [Suspect]
     Active Substance: APIXABAN
     Indication: Cardiac amyloidosis
     Route: 048
     Dates: start: 20210203, end: 20210204
  2. ELIQUIS [Suspect]
     Active Substance: APIXABAN
     Indication: Cerebrovascular accident prophylaxis
  3. TAFAMIDIS MEGLUMINE [Suspect]
     Active Substance: TAFAMIDIS MEGLUMINE
     Indication: Amyloidosis senile
  4. TAFAMIDIS MEGLUMINE [Suspect]
     Active Substance: TAFAMIDIS MEGLUMINE
     Indication: Cardiomyopathy
  5. VYNDAQEL [Suspect]
     Active Substance: TAFAMIDIS MEGLUMINE
     Indication: Amyloidosis senile
     Dosage: 80 MILLIGRAM, QD
     Route: 065
     Dates: start: 20200625, end: 20210203
  6. VYNDAQEL [Suspect]
     Active Substance: TAFAMIDIS MEGLUMINE
     Dates: start: 20200608
  7. AZOSEMIDE [Suspect]
     Active Substance: AZOSEMIDE
     Indication: Amyloidosis senile
     Dosage: UNK
     Route: 048
     Dates: end: 20210204
  8. AZOSEMIDE [Suspect]
     Active Substance: AZOSEMIDE
     Route: 048
     Dates: start: 20210225
  9. SPIRONOLACTONE [Concomitant]
     Active Substance: SPIRONOLACTONE
     Indication: Cardiac amyloidosis
     Dosage: 25 MILLIGRAM, QD
     Route: 048
     Dates: start: 20200616, end: 20210204
  10. SPIRONOLACTONE [Concomitant]
     Active Substance: SPIRONOLACTONE
     Route: 048
     Dates: start: 20210208
  11. VONOPRAZAN FUMARATE [Concomitant]
     Active Substance: VONOPRAZAN FUMARATE
     Indication: Product used for unknown indication
     Dosage: UNK
     Route: 048
  12. WARFARIN [Concomitant]
     Active Substance: WARFARIN
     Indication: Amyloidosis senile
     Route: 048
     Dates: start: 20210208, end: 20210312
  13. AMIODARONE HYDROCHLORIDE [Concomitant]
     Active Substance: AMIODARONE HYDROCHLORIDE
     Indication: Amyloidosis senile
     Route: 048
     Dates: start: 20210318
  14. EDOXABAN TOSYLATE [Concomitant]
     Active Substance: EDOXABAN TOSYLATE
     Indication: Amyloidosis senile
     Route: 048
     Dates: start: 20210315
  15. VERAPAMIL HYDROCHLORIDE [Concomitant]
     Active Substance: VERAPAMIL HYDROCHLORIDE
     Indication: Cardiac amyloidosis
     Route: 048
     Dates: start: 20200715, end: 20210204

REACTIONS (3)
  - Gastric cancer [Recovered/Resolved with Sequelae]
  - Anaemia [Recovered/Resolved]
  - Gastrointestinal haemorrhage [Recovered/Resolved]

NARRATIVE: CASE EVENT DATE: 20210203
